FAERS Safety Report 4987872-7 (Version None)
Quarter: 2006Q2

REPORT INFORMATION
  Report Type: 
  Country: None (occurrence: None)
  Receive Date: 20060424
  Receipt Date: 20060412
  Transmission Date: 20061013
  Serious: Yes (Death)
  Sender: FDA-Public Use
  Company Number: CIP06000782

PATIENT
  Age: 34 Year
  Sex: Female
  Weight: 86 kg

DRUGS (7)
  1. DANTRIUM [Suspect]
     Dosage: 100 MG FOUR TIMES DAILY, IV NOS
     Route: 042
  2. CYPROHEPTADINE HCL [Concomitant]
  3. OXYGEN [Concomitant]
  4. SODIUM CHLORIDE [Concomitant]
  5. CHARCOAL, ACTIVATED [Concomitant]
  6. MIDAZOLAM HCL [Concomitant]
  7. VECURONIUM BROMIDE [Concomitant]

REACTIONS (4)
  - CARDIO-RESPIRATORY ARREST [None]
  - DRUG INEFFECTIVE [None]
  - METABOLIC ACIDOSIS [None]
  - MULTI-ORGAN FAILURE [None]
